FAERS Safety Report 7933199-0 (Version None)
Quarter: 2011Q4

REPORT INFORMATION
  Report Type: 
  Country: None (occurrence: None)
  Receive Date: 20111122
  Receipt Date: 20111114
  Transmission Date: 20120403
  Serious: Yes (Death, Hospitalization)
  Sender: FDA-Public Use
  Company Number: US-ACTELION-A-US2011-56037

PATIENT

DRUGS (2)
  1. TRACLEER [Suspect]
     Indication: PULMONARY ARTERIAL HYPERTENSION
     Dosage: UNK
     Route: 048
     Dates: start: 20090720, end: 20111106
  2. OXYGEN [Concomitant]

REACTIONS (11)
  - DYSPNOEA [None]
  - CHEST DISCOMFORT [None]
  - COR PULMONALE [None]
  - PULMONARY ARTERIAL HYPERTENSION [None]
  - DIZZINESS [None]
  - TACHYCARDIA [None]
  - ASTHENIA [None]
  - CARDIAC ARREST [None]
  - SCLERODERMA [None]
  - PRESYNCOPE [None]
  - ABDOMINAL DISCOMFORT [None]
